FAERS Safety Report 9242982 (Version 8)
Quarter: 2016Q1

REPORT INFORMATION
  Report Type: Spontaneous
  Country: US (occurrence: US)
  Receive Date: 20130419
  Receipt Date: 20160331
  Transmission Date: 20160526
  Serious: Yes (Other)
  Sender: FDA-Public Use
  Company Number: US-009507513-1304USA006804

PATIENT
  Sex: Male
  Weight: 108.84 kg

DRUGS (3)
  1. PROPECIA [Suspect]
     Active Substance: FINASTERIDE
     Indication: ANDROGENETIC ALOPECIA
     Dosage: 1 MG, QD
     Route: 048
     Dates: start: 20040506, end: 200406
  2. OXYCONTIN [Suspect]
     Active Substance: OXYCODONE HYDROCHLORIDE
     Indication: PRODUCT USED FOR UNKNOWN INDICATION
     Dosage: UNK, UNKNOWN
     Route: 065
  3. PROPECIA [Suspect]
     Active Substance: FINASTERIDE
     Dosage: 1 MG, QD
     Route: 048
     Dates: start: 20091023, end: 20120418

REACTIONS (97)
  - Sexual dysfunction [Recovering/Resolving]
  - Ejaculation disorder [Unknown]
  - Apathy [Unknown]
  - Feeling of despair [Not Recovered/Not Resolved]
  - Dyspnoea [Unknown]
  - Crohn^s disease [Recovering/Resolving]
  - Micturition disorder [Unknown]
  - Post-traumatic stress disorder [Unknown]
  - Lichen planus [Unknown]
  - Drug ineffective [Recovering/Resolving]
  - Acne [Not Recovered/Not Resolved]
  - Irritability [Unknown]
  - Insomnia [Unknown]
  - Obsessive-compulsive disorder [Unknown]
  - Blood luteinising hormone decreased [Unknown]
  - Endocrine disorder [Unknown]
  - Mood altered [Unknown]
  - Persistent depressive disorder [Unknown]
  - Fibromyalgia [Unknown]
  - Melanocytic naevus [Unknown]
  - Psoriasis [Unknown]
  - Testicular atrophy [Unknown]
  - Peyronie^s disease [Unknown]
  - Libido decreased [Recovering/Resolving]
  - Memory impairment [Unknown]
  - Bone density decreased [Unknown]
  - Anxiety [Not Recovered/Not Resolved]
  - Cyst removal [Unknown]
  - Confusional state [Unknown]
  - Intestinal haemorrhage [Unknown]
  - Muscle twitching [Unknown]
  - Cognitive disorder [Recovering/Resolving]
  - Panic attack [Not Recovered/Not Resolved]
  - Body fat disorder [Unknown]
  - Agoraphobia [Unknown]
  - Blood cholesterol increased [Unknown]
  - Prostatitis [Unknown]
  - Dizziness [Unknown]
  - Fear [Unknown]
  - Malabsorption [Unknown]
  - Infusion [Unknown]
  - Cold sweat [Unknown]
  - Hypothyroidism [Unknown]
  - Ejaculation failure [Unknown]
  - Primary hypogonadism [Recovering/Resolving]
  - Temperature intolerance [Unknown]
  - Self esteem decreased [Unknown]
  - Asthenia [Unknown]
  - Testicular cyst [Not Recovered/Not Resolved]
  - Microcytic anaemia [Unknown]
  - Central obesity [Unknown]
  - Blood oestrogen increased [Recovering/Resolving]
  - Feeling of body temperature change [Unknown]
  - Obsessive-compulsive disorder [Unknown]
  - Colitis [Unknown]
  - Hydrocele operation [Unknown]
  - Muscle spasms [Unknown]
  - Fall [Unknown]
  - Scoliosis [Unknown]
  - Dysplastic naevus [Unknown]
  - Back disorder [Unknown]
  - Erectile dysfunction [Unknown]
  - Male genital atrophy [Unknown]
  - Erectile dysfunction [Unknown]
  - Semen volume decreased [Unknown]
  - Mental impairment [Unknown]
  - Genital pain [Unknown]
  - Iron deficiency anaemia [Unknown]
  - Drug dependence [Unknown]
  - Emotional disorder [Unknown]
  - Frustration tolerance decreased [Unknown]
  - Haemorrhoids [Unknown]
  - Nervousness [Unknown]
  - Restlessness [Unknown]
  - Suicidal ideation [Not Recovered/Not Resolved]
  - Orgasmic sensation decreased [Unknown]
  - Anaemia [Unknown]
  - Mobility decreased [Unknown]
  - Androgen deficiency [Unknown]
  - Abdominal discomfort [Unknown]
  - Hyperhidrosis [Unknown]
  - Dyspepsia [Unknown]
  - Headache [Unknown]
  - Leukoplakia [Unknown]
  - Rotator cuff syndrome [Unknown]
  - Penile pain [Unknown]
  - Disturbance in attention [Unknown]
  - Cardiac murmur [Unknown]
  - Blunted affect [Unknown]
  - Fatigue [Unknown]
  - Gynaecomastia [Not Recovered/Not Resolved]
  - Muscle atrophy [Unknown]
  - Depression [Unknown]
  - Joint stiffness [Unknown]
  - Winged scapula [Unknown]
  - Sinus disorder [Unknown]
  - Alopecia [Recovering/Resolving]

NARRATIVE: CASE EVENT DATE: 2004
